FAERS Safety Report 5448738-1 (Version None)
Quarter: 2007Q3

REPORT INFORMATION
  Report Type: 
  Country: None (occurrence: None)
  Receive Date: 20070911
  Receipt Date: 20070907
  Transmission Date: 20080115
  Serious: Yes (Other)
  Sender: FDA-Public Use
  Company Number: B0484456A

PATIENT
  Age: 14 Year
  Sex: Female
  Weight: 37.9 kg

DRUGS (1)
  1. ZOVIRAX [Suspect]
     Indication: HERPES ZOSTER
     Dosage: 200MG PER DAY
     Route: 042
     Dates: start: 20070821, end: 20070821

REACTIONS (11)
  - ANAPHYLACTIC REACTION [None]
  - CONJUNCTIVAL HYPERAEMIA [None]
  - COUGH [None]
  - DIARRHOEA [None]
  - DYSPNOEA [None]
  - HYPERVENTILATION [None]
  - NAUSEA [None]
  - PRURITUS [None]
  - PYREXIA [None]
  - RASH [None]
  - URTICARIA [None]
